FAERS Safety Report 5806113-1 (Version None)
Quarter: 2008Q3

REPORT INFORMATION
  Report Type: 
  Country: None (occurrence: None)
  Receive Date: 20080709
  Receipt Date: 20080709
  Transmission Date: 20090109
  Serious: Yes (Hospitalization)
  Sender: FDA-Public Use
  Company Number: None

PATIENT
  Age: 56 Year
  Sex: Male

DRUGS (1)
  1. PREDNISONE TAB [Suspect]
     Indication: CHRONIC OBSTRUCTIVE PULMONARY DISEASE
     Dosage: 10 MG EVERY DAY PO
     Route: 048
     Dates: start: 20080123

REACTIONS (2)
  - GASTRIC HAEMORRHAGE [None]
  - HAEMORRHAGE [None]
